FAERS Safety Report 6654141-9 (Version None)
Quarter: 2010Q1

REPORT INFORMATION
  Report Type: 
  Country: None (occurrence: None)
  Receive Date: 20100326
  Receipt Date: 20100315
  Transmission Date: 20100710
  Serious: Yes (Hospitalization)
  Sender: FDA-Public Use
  Company Number: BE-PFIZER INC-2010032683

PATIENT
  Sex: Male

DRUGS (1)
  1. NEURONTIN [Suspect]
     Route: 048

REACTIONS (1)
  - DEMENTIA [None]
